FAERS Safety Report 8790070 (Version 1)
Quarter: 2012Q4

REPORT INFORMATION
  Report Type: 
  Country: US (occurrence: US)
  Receive Date: 20120917
  Receipt Date: 20120917
  Transmission Date: 20130627
  Serious: No
  Sender: FDA-Public Use
  Company Number: US-PFIZER INC-2012228380

PATIENT
  Age: 40 Year
  Sex: Female
  Weight: 70.3 kg

DRUGS (3)
  1. ADVIL CONGESTION RELIEF [Suspect]
     Indication: SINUSITIS
     Dosage: UNK, Once
     Dates: start: 20120909, end: 20120909
  2. ADVIL CONGESTION RELIEF [Suspect]
     Indication: HYPERSENSITIVITY
  3. ZYRTEC [Suspect]
     Indication: HYPERSENSITIVITY
     Dosage: 10 mg, daily

REACTIONS (5)
  - Drug ineffective [Unknown]
  - Drug effect incomplete [Unknown]
  - Migraine [Recovered/Resolved]
  - Nausea [Recovered/Resolved]
  - Dizziness [Recovered/Resolved]
